FAERS Safety Report 20815994 (Version 1)
Quarter: 2022Q2

REPORT INFORMATION
  Report Type: Other
  Country: KR (occurrence: None)
  Receive Date: 20220511
  Receipt Date: 20220511
  Transmission Date: 20220721
  Serious: Yes (Other)
  Sender: FDA-Public Use
  Company Number: KR-ROCHE-2753934

PATIENT
  Age: 66 Year
  Sex: Male

DRUGS (2)
  1. ATEZOLIZUMAB [Suspect]
     Active Substance: ATEZOLIZUMAB
     Indication: Hepatocellular carcinoma
     Dosage: FURTHER DOSE ON 05/AUG/2020, 26/AUG/2020, 16/SEP/2020, 15/OCT/2020, 04/NOV/2020, 24/NOV/2020, 17/DEC
     Route: 041
     Dates: start: 20200714
  2. BEVACIZUMAB [Suspect]
     Active Substance: BEVACIZUMAB
     Indication: Hepatocellular carcinoma
     Dosage: FURTHER DOSE ON 05/AUG/2020, 26/AUG/2020, 16/SEP/2020, 15/OCT/2020, 04/NOV/2020, 24/NOV/2020, 17/DEC
     Route: 065
     Dates: start: 20200714

REACTIONS (5)
  - Stomatitis [Not Recovered/Not Resolved]
  - Fatigue [Not Recovered/Not Resolved]
  - Hypertension [Recovered/Resolved]
  - Bell^s palsy [Recovered/Resolved]
  - Proteinuria [Recovered/Resolved]

NARRATIVE: CASE EVENT DATE: 20201201
